FAERS Safety Report 4821927-2 (Version None)
Quarter: 2005Q4

REPORT INFORMATION
  Report Type: 
  Country: None (occurrence: None)
  Receive Date: 20051103
  Receipt Date: 20051013
  Transmission Date: 20060501
  Serious: Yes (Other)
  Sender: FDA-Public Use
  Company Number: GBS051018807

PATIENT
  Age: 42 Year
  Sex: Female

DRUGS (1)
  1. FORSTEO (TERIPARATIDE) [Suspect]
     Indication: OSTEOPOROSIS
     Dosage: 20 UG
     Dates: start: 20041201

REACTIONS (2)
  - HIP FRACTURE [None]
  - WRIST FRACTURE [None]
